FAERS Safety Report 5510416-8 (Version None)
Quarter: 2007Q4

REPORT INFORMATION
  Report Type: 
  Country: None (occurrence: None)
  Receive Date: 20071108
  Receipt Date: 20071027
  Transmission Date: 20080405
  Serious: Yes (Hospitalization, Other)
  Sender: FDA-Public Use
  Company Number: US-PFIZER INC-2007077770

PATIENT
  Sex: Female
  Weight: 72.6 kg

DRUGS (28)
  1. LYRICA [Suspect]
     Indication: FIBROMYALGIA
  2. VITAMIN B-12 [Concomitant]
  3. FLUTICASONE PROPIONATE [Concomitant]
  4. GLUCOSAMINE [Concomitant]
  5. MORPHINE SULFATE [Concomitant]
  6. MUCINEX [Concomitant]
  7. ELAVIL [Concomitant]
  8. ZOCOR [Concomitant]
  9. CORGARD [Concomitant]
  10. EFFEXOR [Concomitant]
  11. GARLIC [Concomitant]
  12. MAXZIDE [Concomitant]
     Dosage: TEXT:5/50 MG. HALF TABLET DAILY
  13. PREVACID [Concomitant]
  14. MONTELUKAST SODIUM [Concomitant]
  15. ALL OTHER THERAPEUTIC PRODUCTS [Concomitant]
     Dosage: TEXT:1000 UNITS DAILY
  16. WELLBUTRIN [Concomitant]
  17. ONE-A-DAY [Concomitant]
  18. ZYRTEC [Concomitant]
  19. KLOR-CON [Concomitant]
  20. ORLISTAT [Concomitant]
  21. AMOXICILLIN [Concomitant]
  22. CITRACAL + D [Concomitant]
  23. DIETHYLPROPION HYDROCHLORIDE TAB [Concomitant]
  24. METFORMIN HCL [Concomitant]
  25. ALL OTHER THERAPEUTIC PRODUCTS [Concomitant]
  26. REGLAN [Concomitant]
  27. TOPAMAX [Concomitant]
  28. FLEXERIL [Concomitant]

REACTIONS (8)
  - ASTHENIA [None]
  - DYSARTHRIA [None]
  - FALL [None]
  - OCULAR HYPERAEMIA [None]
  - ORTHOSTATIC HYPOTENSION [None]
  - PARALYSIS [None]
  - SPEECH DISORDER [None]
  - TRANSIENT ISCHAEMIC ATTACK [None]
